FAERS Safety Report 18474066 (Version 2)
Quarter: 2020Q4

REPORT INFORMATION
  Report Type: Spontaneous
  Country: JP (occurrence: JP)
  Receive Date: 20201106
  Receipt Date: 20201203
  Transmission Date: 20210114
  Serious: Yes (Death, Hospitalization, Other)
  Sender: FDA-Public Use
  Company Number: JP-PFIZER INC-2020345158

PATIENT
  Age: 77 Year
  Sex: Male
  Weight: 47.1 kg

DRUGS (5)
  1. EBUTOL [ETHAMBUTOL DIHYDROCHLORIDE] [Concomitant]
     Indication: ATYPICAL MYCOBACTERIAL INFECTION
     Dosage: 625 MG, 1X/DAY
     Route: 048
     Dates: start: 201408
  2. XELJANZ [Suspect]
     Active Substance: TOFACITINIB CITRATE
     Indication: RHEUMATOID ARTHRITIS
     Dosage: 5 MG, 1X/DAY
     Route: 048
     Dates: start: 20180110, end: 20180117
  3. PREDNISOLONE. [Suspect]
     Active Substance: PREDNISOLONE
     Indication: DRUG ERUPTION
     Dosage: 15 MG, 1X/DAY
     Route: 048
     Dates: start: 20171213
  4. RIFAMPICIN [Concomitant]
     Active Substance: RIFAMPIN
     Indication: ATYPICAL MYCOBACTERIAL INFECTION
     Dosage: 450 MG, 1X/DAY
     Route: 048
     Dates: start: 201408
  5. CLARITHROMYCIN. [Concomitant]
     Active Substance: CLARITHROMYCIN
     Indication: ATYPICAL MYCOBACTERIAL INFECTION
     Dosage: 200 MG, 1X/DAY
     Route: 048
     Dates: start: 201408

REACTIONS (5)
  - Cardiac failure [Fatal]
  - Stress cardiomyopathy [Fatal]
  - Decreased activity [Unknown]
  - Bronchopulmonary aspergillosis [Fatal]
  - Pneumonia aspiration [Unknown]

NARRATIVE: CASE EVENT DATE: 20180125
